FAERS Safety Report 7052826-6 (Version None)
Quarter: 2010Q4

REPORT INFORMATION
  Report Type: 
  Country: None (occurrence: None)
  Receive Date: 20101008
  Receipt Date: 20100928
  Transmission Date: 20110411
  Serious: Yes (Other)
  Sender: FDA-Public Use
  Company Number: 2010SP051930

PATIENT

DRUGS (2)
  1. TEMOZOLOMIDE [Suspect]
     Indication: GLIOBLASTOMA MULTIFORME
     Dosage: 75 MG/M2;QD;PO ; 150 MG/M2;QD;PO ; 200 MG/M2;QD;PO
     Route: 048
  2. DOXORUBICIN HCL [Suspect]
     Indication: GLIOBLASTOMA MULTIFORME
     Dosage: 40 MG/M2;ONCE;IV
     Route: 042

REACTIONS (1)
  - SKIN TOXICITY [None]
